FAERS Safety Report 12717799 (Version 2)
Quarter: 2017Q1

REPORT INFORMATION
  Report Type: Report from Study
  Country: US (occurrence: US)
  Receive Date: 20160906
  Receipt Date: 20170130
  Transmission Date: 20170428
  Serious: Yes (Other)
  Sender: FDA-Public Use
  Company Number: US-PFIZER INC-2015307131

PATIENT
  Age: 39 Year
  Sex: Female
  Weight: 61 kg

DRUGS (5)
  1. ATG RABBIT [Suspect]
     Active Substance: LAPINE T-LYMPHOCYTE IMMUNE GLOBULIN
     Indication: BONE MARROW CONDITIONING REGIMEN
     Dosage: DAYS 1-7 PRIOR TO SCT
     Route: 042
     Dates: start: 20150318, end: 20150324
  2. RITUXIMAB [Suspect]
     Active Substance: RITUXIMAB
     Indication: ACUTE LYMPHOCYTIC LEUKAEMIA
     Dosage: 375 MG/M2, DAYS 2 AND 8 (CYCLES 1- 4)
     Route: 042
     Dates: start: 20140502, end: 20150218
  3. BUSULFAN. [Suspect]
     Active Substance: BUSULFAN
     Indication: BONE MARROW CONDITIONING REGIMEN
     Dosage: DAYS 1-7 PRIOR TO SCT
     Route: 042
     Dates: start: 20150318, end: 20150324
  4. INOTUZUMAB OZOGAMICIN [Suspect]
     Active Substance: INOTUZUMAB OZOGAMICIN
     Indication: ACUTE LYMPHOCYTIC LEUKAEMIA
     Dosage: 1.0 MG/M2, DAY 3 (CYCLES 1-4)
     Route: 042
     Dates: start: 20140503, end: 20150212
  5. FLUDARABINE PHOSPHATE. [Suspect]
     Active Substance: FLUDARABINE PHOSPHATE
     Indication: BONE MARROW CONDITIONING REGIMEN
     Dosage: DAYS 1-7 PRIOR TO SCT
     Route: 042
     Dates: start: 20150318, end: 20150324

REACTIONS (1)
  - Venoocclusive liver disease [Not Recovered/Not Resolved]

NARRATIVE: CASE EVENT DATE: 20150501
